FAERS Safety Report 5393640-7 (Version None)
Quarter: 2007Q3

REPORT INFORMATION
  Report Type: 
  Country: None (occurrence: None)
  Receive Date: 20070723
  Receipt Date: 20061013
  Transmission Date: 20080115
  Serious: No
  Sender: FDA-Public Use
  Company Number: A0623561A

PATIENT
  Age: 69 Year
  Sex: Female

DRUGS (3)
  1. AVANDIA [Suspect]
     Dosage: 8MG PER DAY
     Route: 048
  2. WATER PILL [Concomitant]
  3. PLAVIX [Concomitant]

REACTIONS (2)
  - CONSTIPATION [None]
  - WEIGHT INCREASED [None]
